FAERS Safety Report 9250437 (Version 1)
Quarter: 2013Q1

REPORT INFORMATION
  Report Type: Spontaneous
  Country: US (occurrence: None)
  Receive Date: 20130305
  Receipt Date: 20130305
  Transmission Date: 20140127
  Serious: Yes (Hospitalization)
  Sender: FDA-Public Use
  Company Number: 163-21880-12061034

PATIENT
  Age: 64 Year
  Sex: Male

DRUGS (5)
  1. REVLIMID (LENALIDOMIDE) [Suspect]
     Indication: PLASMA CELL MYELOMA
     Route: 048
     Dates: start: 20070904
  2. AREDIA (PAMIDRONATE DISODIUM) [Concomitant]
  3. MORPHINE SULFATE (MORPHINE SULFATE) INJECTION [Concomitant]
  4. PERCOCET (OXYCOCET) [Concomitant]
  5. PROMETHAZINE (PROMETHAZINE) [Concomitant]

REACTIONS (1)
  - Thrombosis [None]
